FAERS Safety Report 18310994 (Version 5)
Quarter: 2022Q1

REPORT INFORMATION
  Report Type: Spontaneous
  Country: US (occurrence: US)
  Receive Date: 20200924
  Receipt Date: 20220315
  Transmission Date: 20220423
  Serious: Yes (Other)
  Sender: FDA-Public Use
  Company Number: US-GILEAD-2020-0495672

PATIENT
  Age: 32 Year
  Sex: Male
  Weight: 65.76 kg

DRUGS (40)
  1. TRUVADA [Suspect]
     Active Substance: EMTRICITABINE\TENOFOVIR DISOPROXIL FUMARATE
     Indication: Prophylaxis against HIV infection
     Dosage: UNK
     Route: 048
     Dates: start: 2013, end: 201912
  2. TRUVADA [Suspect]
     Active Substance: EMTRICITABINE\TENOFOVIR DISOPROXIL FUMARATE
     Dosage: UNK
     Route: 048
     Dates: start: 2013, end: 2015
  3. TRUVADA [Suspect]
     Active Substance: EMTRICITABINE\TENOFOVIR DISOPROXIL FUMARATE
     Dosage: UNK
     Route: 048
     Dates: start: 2019
  4. TRUVADA [Suspect]
     Active Substance: EMTRICITABINE\TENOFOVIR DISOPROXIL FUMARATE
     Dosage: UNK
     Route: 048
     Dates: start: 20191011, end: 20200225
  5. TRUVADA [Suspect]
     Active Substance: EMTRICITABINE\TENOFOVIR DISOPROXIL FUMARATE
     Dosage: UNK
     Route: 048
     Dates: start: 2013, end: 20200225
  6. DESCOVY [Concomitant]
     Active Substance: EMTRICITABINE\TENOFOVIR ALAFENAMIDE FUMARATE
  7. MELOXICAM [Concomitant]
     Active Substance: MELOXICAM
  8. BENZONATATE [Concomitant]
     Active Substance: BENZONATATE
  9. ACETAMINOPHEN [Concomitant]
     Active Substance: ACETAMINOPHEN
  10. ALENDRONATE [Concomitant]
     Active Substance: ALENDRONATE SODIUM
  11. ASPIRIN [Concomitant]
     Active Substance: ASPIRIN
  12. PREDNISONE [Concomitant]
     Active Substance: PREDNISONE
  13. TETRACYCLINE [Concomitant]
     Active Substance: TETRACYCLINE
  14. ISENTRESS [Concomitant]
     Active Substance: RALTEGRAVIR POTASSIUM
  15. PENICILLIN [Concomitant]
     Active Substance: PENICILLIN
  16. FLUCONAZOLE [Concomitant]
     Active Substance: FLUCONAZOLE
  17. CLINDACIN PAC [Concomitant]
     Active Substance: CLINDAMYCIN PHOSPHATE
  18. CLINDAMYCIN [Concomitant]
     Active Substance: CLINDAMYCIN
  19. AZITHROMYCIN [Concomitant]
     Active Substance: AZITHROMYCIN
  20. ERYTHROMYCIN [Concomitant]
     Active Substance: ERYTHROMYCIN
  21. CEPHALEXIN [Concomitant]
     Active Substance: CEPHALEXIN
  22. CLARAVIS [Concomitant]
     Active Substance: ISOTRETINOIN
  23. CHLORPHENIRAMINE\HYDROCODONE [Concomitant]
     Active Substance: CHLORPHENIRAMINE\HYDROCODONE
  24. ZOLPIDEM [Concomitant]
     Active Substance: ZOLPIDEM TARTRATE
  25. PERMETHRIN [Concomitant]
     Active Substance: PERMETHRIN
  26. PROAIR HFA [Concomitant]
     Active Substance: ALBUTEROL SULFATE
  27. AMOXICILLIN\CLAVULANIC ACID [Concomitant]
     Active Substance: AMOXICILLIN\CLAVULANIC ACID
  28. PROMETHAZINE - DEXTROMETHORPHANE [Concomitant]
  29. FLUTICASONE PROPIONATE [Concomitant]
     Active Substance: FLUTICASONE PROPIONATE
  30. SULFAMETHOXAZOLE AND TRIMETHOPRIM [Concomitant]
     Active Substance: SULFAMETHOXAZOLE\TRIMETHOPRIM
  31. OXYCODONE HYDROCHLORIDE [Concomitant]
     Active Substance: OXYCODONE HYDROCHLORIDE
  32. IMIQUIMOD [Concomitant]
     Active Substance: IMIQUIMOD
  33. FLUCONAZOLE [Concomitant]
     Active Substance: FLUCONAZOLE
  34. SILVER SULFADIAZINE [Concomitant]
     Active Substance: SILVER SULFADIAZINE
  35. CEFDINIR [Concomitant]
     Active Substance: CEFDINIR
  36. ETODOLAC [Concomitant]
     Active Substance: ETODOLAC
  37. DOXYCYCLINE HYCLATE [Concomitant]
     Active Substance: DOXYCYCLINE HYCLATE
  38. HYDROCORTISONE [Concomitant]
     Active Substance: HYDROCORTISONE
  39. CEFUROXIME [Concomitant]
     Active Substance: CEFUROXIME
  40. HOMATROPINE METHYLBROMIDE\HYDROCODONE BITARTRATE [Concomitant]
     Active Substance: HOMATROPINE METHYLBROMIDE\HYDROCODONE BITARTRATE

REACTIONS (21)
  - Renal injury [Unknown]
  - Osteonecrosis [Not Recovered/Not Resolved]
  - Nephropathy [Unknown]
  - Skeletal injury [Unknown]
  - Bone disorder [Unknown]
  - Bone density decreased [Unknown]
  - Bone loss [Unknown]
  - Anhedonia [Unknown]
  - Emotional distress [Unknown]
  - Anxiety [Unknown]
  - Pain [Unknown]
  - Cartilage injury [Unknown]
  - Bursitis [Unknown]
  - Femoroacetabular impingement [Unknown]
  - Soft tissue disorder [Unknown]
  - Joint stiffness [Unknown]
  - Depression [Not Recovered/Not Resolved]
  - Gait disturbance [Not Recovered/Not Resolved]
  - Mobility decreased [Not Recovered/Not Resolved]
  - Arthralgia [Not Recovered/Not Resolved]
  - Pain in extremity [Not Recovered/Not Resolved]

NARRATIVE: CASE EVENT DATE: 20191101
